FAERS Safety Report 7006441-0 (Version None)
Quarter: 2010Q3

REPORT INFORMATION
  Report Type: 
  Country: None (occurrence: None)
  Receive Date: 20100921
  Receipt Date: 20100913
  Transmission Date: 20110219
  Serious: Yes (Hospitalization)
  Sender: FDA-Public Use
  Company Number: US-AMGEN-KDL438147

PATIENT
  Sex: Male

DRUGS (2)
  1. ENBREL [Suspect]
     Indication: RHEUMATOID ARTHRITIS
     Route: 058
     Dates: end: 20100624
  2. METHOTREXATE [Concomitant]

REACTIONS (6)
  - BACK PAIN [None]
  - MENINGITIS BACTERIAL [None]
  - NEPHROLITHIASIS [None]
  - RENAL FAILURE [None]
  - RENAL IMPAIRMENT [None]
  - RHEUMATOID ARTHRITIS [None]
